FAERS Safety Report 9725788 (Version 2)
Quarter: 2014Q1

REPORT INFORMATION
  Report Type: Spontaneous
  Country: NO (occurrence: NO)
  Receive Date: 20131203
  Receipt Date: 20140203
  Transmission Date: 20141002
  Serious: Yes (Other)
  Sender: FDA-Public Use
  Company Number: NO-ASTELLAS-2013EU010347

PATIENT
  Sex: Male

DRUGS (4)
  1. BETMIGA [Suspect]
     Indication: HYPERTONIC BLADDER
     Dosage: 50 MG, UID/QD
     Route: 048
     Dates: start: 20131108
  2. DUODART [Concomitant]
     Indication: BENIGN PROSTATIC HYPERPLASIA
     Dosage: UNK
     Route: 065
  3. DUODART [Concomitant]
     Indication: POLLAKIURIA
  4. TRIOBE                             /01079901/ [Concomitant]
     Dosage: UNK
     Route: 065

REACTIONS (1)
  - Cardiac discomfort [Unknown]
